FAERS Safety Report 4444541-X (Version None)
Quarter: 2004Q3

REPORT INFORMATION
  Report Type: 
  Country: None (occurrence: None)
  Receive Date: 20040902
  Receipt Date: 20040822
  Transmission Date: 20050211
  Serious: Yes (Other)
  Sender: FDA-Public Use
  Company Number: 163-20785-04080478

PATIENT
  Sex: 0

DRUGS (2)
  1. THALOMID [Suspect]
     Indication: RENAL CELL CARCINOMA STAGE UNSPECIFIED
     Dosage: 200 MG, DAILY, ORAL; INCREASE 100MG INCREMENTS Q2W TO 800 MG., QD, ORAL
     Route: 048
  2. BEVACIZUMAB (BEVACIZUMAB) [Suspect]
     Indication: RENAL CELL CARCINOMA STAGE UNSPECIFIED
     Dosage: SEE IMAGE
     Route: 042

REACTIONS (1)
  - MALIGNANT HYPERTENSION [None]
